FAERS Safety Report 15155690 (Version 1)
Quarter: 2018Q3

REPORT INFORMATION
  Report Type: Not Available
  Country: DE (occurrence: DE)
  Receive Date: 20180717
  Receipt Date: 20180717
  Transmission Date: 20181010
  Serious: Yes (Death, Life-Threatening, Hospitalization, Other)
  Sender: FDA-Public Use
  Company Number: DE-SYNTHON BV-NL01PV18_47134

PATIENT
  Age: 68 Year
  Sex: Male

DRUGS (16)
  1. HALOPERIDOL. [Suspect]
     Active Substance: HALOPERIDOL
     Dosage: 15 MG, QD
     Route: 048
     Dates: start: 20171109, end: 20171109
  2. RISPERIDONE. [Suspect]
     Active Substance: RISPERIDONE
     Dosage: 2 MG, QD
     Route: 048
     Dates: start: 20171121, end: 20171122
  3. RISPERIDONE. [Suspect]
     Active Substance: RISPERIDONE
     Indication: FRONTOTEMPORAL DEMENTIA
     Dosage: 3 MG, QD
     Route: 048
     Dates: start: 20171124, end: 20171124
  4. HALOPERIDOL. [Suspect]
     Active Substance: HALOPERIDOL
     Dosage: 20 MG, QD
     Route: 048
     Dates: start: 20171110, end: 20171113
  5. HALOPERIDOL. [Suspect]
     Active Substance: HALOPERIDOL
     Dosage: 10 MG, QD
     Route: 048
     Dates: start: 20171108, end: 20171108
  6. HALOPERIDOL. [Suspect]
     Active Substance: HALOPERIDOL
     Dosage: 7.5 MG, QD
     Route: 048
     Dates: start: 20171117, end: 20171119
  7. RISPERIDONE. [Suspect]
     Active Substance: RISPERIDONE
     Dosage: 2.5 MG, QD
     Route: 048
     Dates: start: 20171123, end: 20171123
  8. HALOPERIDOL. [Suspect]
     Active Substance: HALOPERIDOL
     Dosage: 2.5 MG, QD
     Route: 048
     Dates: start: 20171115, end: 20171115
  9. HALOPERIDOL. [Suspect]
     Active Substance: HALOPERIDOL
     Dosage: 5 MG, QD
     Route: 048
     Dates: start: 20171122, end: 20171122
  10. RISPERIDONE. [Suspect]
     Active Substance: RISPERIDONE
     Dosage: 1.5 MG, QD
     Route: 048
     Dates: start: 20171031, end: 20171031
  11. RISPERIDONE. [Suspect]
     Active Substance: RISPERIDONE
     Dosage: 2 MG, QD
     Route: 048
     Dates: start: 20171116, end: 20171119
  12. HALOPERIDOL. [Suspect]
     Active Substance: HALOPERIDOL
     Indication: FRONTOTEMPORAL DEMENTIA
     Dosage: 5 MG, QD
     Route: 048
     Dates: start: 20171116, end: 20171116
  13. TAMSULOSIN [Suspect]
     Active Substance: TAMSULOSIN
     Indication: PRODUCT USED FOR UNKNOWN INDICATION
     Dosage: 0.4 MG, QD
     Route: 048
     Dates: start: 20100101, end: 20171124
  14. HALOPERIDOL. [Suspect]
     Active Substance: HALOPERIDOL
     Dosage: 2.5 MG, QD
     Route: 048
     Dates: start: 20171121, end: 20171121
  15. HALOPERIDOL. [Suspect]
     Active Substance: HALOPERIDOL
     Dosage: 17.5 MG, QD
     Route: 048
     Dates: start: 20171114, end: 20171114
  16. HALOPERIDOL. [Suspect]
     Active Substance: HALOPERIDOL
     Dosage: 2.5 MG, QD
     Route: 048
     Dates: start: 20171124, end: 20171124

REACTIONS (4)
  - Off label use [Unknown]
  - Sudden death [Fatal]
  - Adjustment disorder [Fatal]
  - Product use in unapproved indication [Unknown]

NARRATIVE: CASE EVENT DATE: 20171031
